FAERS Safety Report 17601236 (Version 2)
Quarter: 2020Q1

REPORT INFORMATION
  Report Type: Spontaneous
  Country: US (occurrence: US)
  Receive Date: 20200330
  Receipt Date: 20200330
  Transmission Date: 20200409
  Serious: No
  Sender: FDA-Public Use
  Company Number: US-GALDERMA-US19067482

PATIENT
  Sex: Female

DRUGS (1)
  1. PROACTIV MD ADAPALENE ACNE TREATMENT [Suspect]
     Active Substance: ADAPALENE
     Indication: PRODUCT USED FOR UNKNOWN INDICATION
     Dosage: 0.1%
     Route: 061

REACTIONS (11)
  - Acne pustular [Unknown]
  - Erythema [Unknown]
  - Acne [Unknown]
  - Parotid gland enlargement [Unknown]
  - Skin burning sensation [Unknown]
  - Swelling face [Unknown]
  - Pruritus [Unknown]
  - Paraesthesia [Unknown]
  - Skin infection [Unknown]
  - Rash [Unknown]
  - Pain of skin [Unknown]
